FAERS Safety Report 23689046 (Version 2)
Quarter: 2024Q3

REPORT INFORMATION
  Report Type: Spontaneous
  Country: JP (occurrence: JP)
  Receive Date: 20240329
  Receipt Date: 20240906
  Transmission Date: 20241017
  Serious: Yes (Hospitalization)
  Sender: ELI LILLY AND CO
  Company Number: JP-ELI_LILLY_AND_COMPANY-JP202402004368

PATIENT
  Age: 15 Year
  Sex: Male
  Weight: 49 kg

DRUGS (1)
  1. OLUMIANT [Suspect]
     Active Substance: BARICITINIB
     Indication: Alopecia totalis
     Dosage: 4 MG, DAILY
     Route: 048
     Dates: start: 20221115, end: 20231105

REACTIONS (2)
  - Herpes zoster meningitis [Recovering/Resolving]
  - Herpes zoster [Recovering/Resolving]

NARRATIVE: CASE EVENT DATE: 20231101
